FAERS Safety Report 4475095-X (Version None)
Quarter: 2004Q4

REPORT INFORMATION
  Report Type: 
  Country: None (occurrence: None)
  Receive Date: 20041015
  Receipt Date: 20041005
  Transmission Date: 20050328
  Serious: Yes (Hospitalization)
  Sender: FDA-Public Use
  Company Number: FR-JNJFOC-20040900958

PATIENT
  Age: 57 Year
  Sex: Female
  Weight: 53 kg

DRUGS (4)
  1. REMICADE [Suspect]
     Route: 042
  2. REMICADE [Suspect]
     Indication: CROHN'S DISEASE
     Route: 042
  3. PURINETHOL [Suspect]
     Indication: CROHN'S DISEASE
     Route: 049
  4. SOLUPRED [Concomitant]
     Indication: CROHN'S DISEASE
     Route: 049

REACTIONS (2)
  - HERPES ZOSTER [None]
  - LYMPHOPENIA [None]
